FAERS Safety Report 11880283 (Version 1)
Quarter: 2015Q4

REPORT INFORMATION
  Report Type: Report from Study
  Country: CA (occurrence: CA)
  Receive Date: 20151230
  Receipt Date: 20151230
  Transmission Date: 20160305
  Serious: Yes (Death, Other)
  Sender: FDA-Public Use
  Company Number: CA-BIOGEN-2015BI152962

PATIENT
  Age: 33 Year
  Sex: Female

DRUGS (1)
  1. TECFIDERA [Suspect]
     Active Substance: DIMETHYL FUMARATE
     Indication: MULTIPLE SCLEROSIS
     Route: 048
     Dates: start: 201310, end: 20151003

REACTIONS (3)
  - Myocardial infarction [Fatal]
  - Dyspnoea [Recovered/Resolved]
  - Vein rupture [Not Recovered/Not Resolved]

NARRATIVE: CASE EVENT DATE: 20150927
